FAERS Safety Report 9483830 (Version 2)
Quarter: 2013Q3

REPORT INFORMATION
  Report Type: Spontaneous
  Country: CA (occurrence: CA)
  Receive Date: 20130828
  Receipt Date: 20130828
  Transmission Date: 20140515
  Serious: Yes (Hospitalization)
  Sender: FDA-Public Use
  Company Number: CA-AMGEN-KDL306347

PATIENT
  Age: 50 Year
  Sex: Female
  Weight: 61.3 kg

DRUGS (7)
  1. ENBREL [Suspect]
     Indication: RHEUMATOID ARTHRITIS
     Dosage: UNK UNK, QWK
     Route: 065
     Dates: start: 20080720
  2. METHOTREXATE [Concomitant]
     Dosage: UNK UNK, UNK
  3. GLYCERYL TRINITRATE [Concomitant]
     Dosage: UNK UNK, UNK
     Route: 062
  4. ISOSORBIDE DINITRATE [Concomitant]
     Dosage: UNK UNK, UNK
     Route: 060
  5. UNSPECIFIED ANTICOAGULANT [Concomitant]
  6. ASPIRIN [Concomitant]
  7. UNSPECIFIED BETA BLOCKER [Concomitant]

REACTIONS (3)
  - Angina unstable [Unknown]
  - Hyperhidrosis [Unknown]
  - Injection site haemorrhage [Unknown]
